FAERS Safety Report 23421055 (Version 1)
Quarter: 2024Q1

REPORT INFORMATION
  Report Type: Report from Study
  Country: CA (occurrence: CA)
  Receive Date: 20240119
  Receipt Date: 20240119
  Transmission Date: 20240410
  Serious: Yes (Hospitalization)
  Sender: FDA-Public Use
  Company Number: None

PATIENT
  Age: 72 Year
  Sex: Female

DRUGS (12)
  1. METHOTREXATE [Suspect]
     Active Substance: METHOTREXATE
     Indication: Product used for unknown indication
     Route: 065
  2. ACTEMRA [Suspect]
     Active Substance: TOCILIZUMAB
     Indication: Rheumatoid arthritis
     Route: 058
  3. ASPIRIN [Concomitant]
     Active Substance: ASPIRIN
     Route: 065
  4. ATORVASTATIN [Concomitant]
     Active Substance: ATORVASTATIN
     Route: 048
  5. CANDESARTAN [Concomitant]
     Active Substance: CANDESARTAN
  6. FOLIC ACID [Concomitant]
     Active Substance: FOLIC ACID
  7. HYDROCHLOROTHIAZIDE [Concomitant]
     Active Substance: HYDROCHLOROTHIAZIDE
  8. METOPROLOL [Concomitant]
     Active Substance: METOPROLOL
  9. NAPROXEN [Concomitant]
     Active Substance: NAPROXEN
  10. PANTOPRAZOLE [Concomitant]
     Active Substance: PANTOPRAZOLE
  11. VITAMIN C [Concomitant]
     Active Substance: ASCORBIC ACID
  12. TOFACITINIB [Concomitant]
     Active Substance: TOFACITINIB

REACTIONS (25)
  - Asthenia [Recovered/Resolved]
  - Blood bilirubin increased [Recovered/Resolved]
  - Blood pressure increased [Recovered/Resolved]
  - Chest discomfort [Recovered/Resolved]
  - Chest pain [Recovered/Resolved]
  - Chondrocalcinosis [Recovered/Resolved]
  - Dizziness [Recovered/Resolved]
  - Fall [Recovered/Resolved]
  - Foot deformity [Recovered/Resolved]
  - Hypertension [Recovered/Resolved]
  - Hypertransaminasaemia [Recovered/Resolved]
  - Jaundice [Recovered/Resolved]
  - Joint arthroplasty [Recovered/Resolved]
  - Joint noise [Recovered/Resolved]
  - Joint swelling [Recovered/Resolved]
  - Lung opacity [Recovered/Resolved]
  - Muscle spasms [Recovered/Resolved]
  - Myofascial pain syndrome [Recovered/Resolved]
  - Nausea [Recovered/Resolved]
  - Rheumatoid arthritis [Recovered/Resolved]
  - Scar [Recovered/Resolved]
  - Spinal deformity [Recovered/Resolved]
  - Spinal osteoarthritis [Recovered/Resolved]
  - Therapeutic product effect decreased [Recovered/Resolved]
  - Tremor [Recovered/Resolved]
